FAERS Safety Report 18625365 (Version 1)
Quarter: 2020Q4

REPORT INFORMATION
  Report Type: Spontaneous
  Country: US (occurrence: US)
  Receive Date: 20201216
  Receipt Date: 20201216
  Transmission Date: 20210114
  Serious: No
  Sender: FDA-Public Use
  Company Number: US-CATALYST PHARMACEUTICALS, INC-2020CAT00505

PATIENT
  Age: 74 Year
  Sex: Male
  Weight: 65.76 kg

DRUGS (8)
  1. CHEMO [Suspect]
     Active Substance: UNSPECIFIED INGREDIENT
     Indication: METASTASES TO LIVER
  2. UNKNOWN STATIN [Concomitant]
     Active Substance: UNSPECIFIED INGREDIENT
  3. ASPIRIN. [Concomitant]
     Active Substance: ASPIRIN
     Dosage: 81 MG
  4. CHEMO [Suspect]
     Active Substance: UNSPECIFIED INGREDIENT
     Indication: METASTASES TO LYMPH NODES
  5. PANTOPRAZOLE [Concomitant]
     Active Substance: PANTOPRAZOLE
  6. FIRDAPSE [Suspect]
     Active Substance: AMIFAMPRIDINE PHOSPHATE
     Indication: MYASTHENIC SYNDROME
     Dosage: 10 MG, 3X/DAY
     Route: 048
     Dates: start: 20200918
  7. FUROSEMIDE. [Concomitant]
     Active Substance: FUROSEMIDE
  8. CHEMO [Suspect]
     Active Substance: UNSPECIFIED INGREDIENT
     Indication: SMALL CELL LUNG CANCER METASTATIC
     Dosage: UNK

REACTIONS (3)
  - Headache [Recovered/Resolved]
  - Intentional product use issue [Not Recovered/Not Resolved]
  - Therapeutic product effect incomplete [Not Recovered/Not Resolved]

NARRATIVE: CASE EVENT DATE: 2020
